FAERS Safety Report 4773230-7 (Version None)
Quarter: 2005Q3

REPORT INFORMATION
  Report Type: 
  Country: None (occurrence: None)
  Receive Date: 20050919
  Receipt Date: 20050909
  Transmission Date: 20060218
  Serious: Yes (Hospitalization)
  Sender: FDA-Public Use
  Company Number: CH-MERCK-0509CHE00026

PATIENT
  Age: 16 Year
  Sex: Male

DRUGS (17)
  1. PRIMAXIN [Suspect]
     Indication: OSTEOMYELITIS
     Route: 042
     Dates: start: 20050808, end: 20050811
  2. PIPERACILLIN SODIUM AND TAZOBACTAM SODIUM [Suspect]
     Indication: OSTEOMYELITIS
     Route: 042
     Dates: start: 20050726, end: 20050808
  3. AMOXICILLIN AND CLAVULANATE POTASSIUM [Suspect]
     Indication: OSTEOMYELITIS
     Route: 042
     Dates: start: 20050725, end: 20050726
  4. DIPYRONE [Concomitant]
     Route: 042
     Dates: start: 20050724, end: 20050724
  5. STREPTOMYCIN [Concomitant]
     Indication: OSTEOMYELITIS
     Route: 042
     Dates: start: 20050809, end: 20050801
  6. MEFENAMIC ACID [Concomitant]
     Route: 048
     Dates: start: 20050101
  7. ACETAMINOPHEN [Concomitant]
     Route: 048
     Dates: start: 20050101
  8. METHADONE HYDROCHLORIDE [Concomitant]
     Route: 048
     Dates: start: 20050101
  9. ESOMEPRAZOLE MAGNESIUM [Concomitant]
     Route: 048
     Dates: start: 20050101
  10. DALTEPARIN SODIUM [Concomitant]
     Route: 058
     Dates: start: 20050101
  11. VITAMINS (UNSPECIFIED) [Concomitant]
     Route: 048
  12. PHENOLPHTHALEIN [Concomitant]
     Route: 048
  13. LACTULOSE [Concomitant]
     Route: 048
  14. BISACODYL [Concomitant]
     Route: 065
  15. SENNOSIDES [Concomitant]
     Route: 048
  16. SACCHAROMYCES BOULARDII (AS DRUG) [Concomitant]
     Route: 065
  17. CORTICOSTEROIDS (UNSPECIFIED) [Concomitant]
     Route: 065

REACTIONS (3)
  - AGRANULOCYTOSIS [None]
  - LEUKOPENIA [None]
  - NEUTROPENIA [None]
